FAERS Safety Report 13358546 (Version 3)
Quarter: 2017Q2

REPORT INFORMATION
  Report Type: Spontaneous
  Country: JP (occurrence: JP)
  Receive Date: 20170322
  Receipt Date: 20170524
  Transmission Date: 20170830
  Serious: No
  Sender: FDA-Public Use
  Company Number: JP-ASTRAZENECA-2017SE28641

PATIENT
  Age: 24770 Day
  Sex: Female
  Weight: 68 kg

DRUGS (3)
  1. FASLODEX [Suspect]
     Active Substance: FULVESTRANT
     Indication: BREAST CANCER FEMALE
     Route: 030
     Dates: start: 20160621
  2. LETROZOLE. [Concomitant]
     Active Substance: LETROZOLE
     Indication: BREAST CANCER FEMALE
     Dosage: DOSE UNKNOWN
     Route: 065
     Dates: start: 20090503
  3. EXEMESTANE. [Concomitant]
     Active Substance: EXEMESTANE
     Indication: BREAST CANCER FEMALE
     Dosage: DOSE UNKNOWN
     Route: 048
     Dates: start: 20111220

REACTIONS (3)
  - Injection site pain [Unknown]
  - Injection site extravasation [Unknown]
  - Injection site induration [Recovering/Resolving]

NARRATIVE: CASE EVENT DATE: 20170314
